FAERS Safety Report 16849276 (Version 2)
Quarter: 2020Q4

REPORT INFORMATION
  Report Type: Spontaneous
  Country: IT (occurrence: IT)
  Receive Date: 20190925
  Receipt Date: 20201102
  Transmission Date: 20210113
  Serious: Yes (Other)
  Sender: FDA-Public Use
  Company Number: IT-SUN PHARMACEUTICAL INDUSTRIES LTD-2019RR-221495

PATIENT
  Sex: Female

DRUGS (2)
  1. LETROZOLE. [Suspect]
     Active Substance: LETROZOLE
     Indication: BREAST CANCER
     Dosage: 2.5 MILLIGRAM, QD
     Route: 048
  2. TRIPTORELIN [Suspect]
     Active Substance: TRIPTORELIN
     Indication: BREAST CANCER
     Dosage: 3.75 MILLIGRAM, MONTHLY
     Route: 030

REACTIONS (3)
  - Off label use [Unknown]
  - Product use in unapproved indication [Unknown]
  - Hypertension [Unknown]
